FAERS Safety Report 24224515 (Version 1)
Quarter: 2024Q3

REPORT INFORMATION
  Report Type: Spontaneous
  Country: DE (occurrence: DE)
  Receive Date: 20240819
  Receipt Date: 20240819
  Transmission Date: 20241017
  Serious: Yes (Other)
  Sender: MYLAN
  Company Number: None

PATIENT
  Age: 28 Year
  Sex: Male
  Weight: 86 kg

DRUGS (1)
  1. VENLAFAXINE [Suspect]
     Active Substance: VENLAFAXINE HYDROCHLORIDE
     Indication: Social anxiety disorder
     Dosage: 37.5 MILLIGRAM, QD
     Route: 048
     Dates: start: 20230101, end: 20230301

REACTIONS (3)
  - Penile discomfort [Recovering/Resolving]
  - Erectile dysfunction [Recovering/Resolving]
  - Libido decreased [Recovering/Resolving]

NARRATIVE: CASE EVENT DATE: 20230301
